FAERS Safety Report 8894153 (Version 2)
Quarter: 2013Q1

REPORT INFORMATION
  Report Type: Spontaneous
  Country: US (occurrence: US)
  Receive Date: 20121108
  Receipt Date: 20130122
  Transmission Date: 20140127
  Serious: No
  Sender: FDA-Public Use
  Company Number: US-009507513-1211USA002631

PATIENT
  Age: 60 None
  Sex: Female

DRUGS (5)
  1. AZASITE [Suspect]
     Indication: EYE INFECTION
     Dosage: EXACTLY AS PER THE PI
     Route: 047
     Dates: start: 20121031
  2. TOPAMAX [Concomitant]
  3. XANAX [Concomitant]
  4. ESTRACE [Concomitant]
  5. PROPRANOLOL HYDROCHLORIDE [Concomitant]

REACTIONS (5)
  - Ocular hyperaemia [Unknown]
  - Eye irritation [Unknown]
  - Eye irritation [Unknown]
  - Expired drug administered [Unknown]
  - Incorrect storage of drug [Unknown]
